FAERS Safety Report 9056900 (Version 2)
Quarter: 2013Q1

REPORT INFORMATION
  Report Type: Other
  Country: JP (occurrence: JP)
  Receive Date: 20130201
  Receipt Date: 20130211
  Transmission Date: 20140127
  Serious: Yes (Other)
  Sender: FDA-Public Use
  Company Number: JP-BRISTOL-MYERS SQUIBB COMPANY-17323551

PATIENT
  Age: 53 Year
  Sex: Male

DRUGS (4)
  1. ABILIFY [Suspect]
     Indication: SCHIZOPHRENIA
     Route: 048
  2. OLANZAPINE [Suspect]
     Route: 048
  3. TIMIPERONE [Suspect]
     Route: 048
  4. BIPERIDEN [Suspect]

REACTIONS (4)
  - Neuroleptic malignant syndrome [Recovered/Resolved]
  - Rhabdomyolysis [Recovered/Resolved]
  - Pneumatosis intestinalis [Recovered/Resolved]
  - Portal venous gas [Recovered/Resolved]
